FAERS Safety Report 9492925 (Version 2)
Quarter: 2015Q4

REPORT INFORMATION
  Report Type: Report from Study
  Country: US (occurrence: US)
  Receive Date: 20130902
  Receipt Date: 20151012
  Transmission Date: 20160305
  Serious: Yes (Hospitalization)
  Sender: FDA-Public Use
  Company Number: US-ROCHE-1269088

PATIENT
  Sex: Male

DRUGS (2)
  1. XOLAIR [Suspect]
     Active Substance: OMALIZUMAB
     Indication: ASTHMA
     Route: 058
     Dates: start: 201202
  2. XOLAIR [Suspect]
     Active Substance: OMALIZUMAB
     Indication: GASTROOESOPHAGEAL REFLUX DISEASE

REACTIONS (1)
  - Asthma [Unknown]
